FAERS Safety Report 7911602-X (Version None)
Quarter: 2011Q4

REPORT INFORMATION
  Report Type: 
  Country: None (occurrence: None)
  Receive Date: 20111114
  Receipt Date: 20111106
  Transmission Date: 20120403
  Serious: Yes (Other)
  Sender: FDA-Public Use
  Company Number: US-AMGEN-USASP2011058324

PATIENT
  Age: 39 Year
  Sex: Female

DRUGS (2)
  1. ENBREL [Suspect]
     Indication: RHEUMATOID ARTHRITIS
     Dosage: 50 MG, QWK
     Dates: start: 20110601
  2. METHOTREXATE [Concomitant]
     Dosage: 1 MG, QWK
     Dates: start: 20080601

REACTIONS (6)
  - VISION BLURRED [None]
  - SMEAR CERVIX ABNORMAL [None]
  - BETA HAEMOLYTIC STREPTOCOCCAL INFECTION [None]
  - DIZZINESS [None]
  - BALANCE DISORDER [None]
  - FATIGUE [None]
